FAERS Safety Report 10177681 (Version 3)
Quarter: 2015Q1

REPORT INFORMATION
  Report Type: Spontaneous
  Country: BE (occurrence: BE)
  Receive Date: 20140516
  Receipt Date: 20150205
  Transmission Date: 20150720
  Serious: Yes (Hospitalization)
  Sender: FDA-Public Use
  Company Number: PHHY2014BE058801

PATIENT
  Age: 77 Year
  Sex: Male

DRUGS (5)
  1. CANDESARTAN CILEXETIL. [Suspect]
     Active Substance: CANDESARTAN CILEXETIL
  2. METFORMIN [Suspect]
     Active Substance: METFORMIN HYDROCHLORIDE
     Indication: DIABETIC ULCER
  3. FLUCLOXACILLIN [Suspect]
     Active Substance: FLUCLOXACILLIN
     Indication: DIABETIC ULCER
  4. ACETAMINOPHEN (PARACETAMOL) [Suspect]
     Active Substance: ACETAMINOPHEN
     Dosage: 2 G, UNK
  5. ASPIRIN. [Concomitant]
     Active Substance: ASPIRIN

REACTIONS (8)
  - General physical health deterioration [Unknown]
  - Abdominal tenderness [Unknown]
  - Nausea [Unknown]
  - Metabolic acidosis [Unknown]
  - Hyperventilation [Unknown]
  - Blood creatinine increased [Unknown]
  - Decreased appetite [Unknown]
  - Hypotension [Recovering/Resolving]
